FAERS Safety Report 9506112 (Version 1)
Quarter: 2013Q1

REPORT INFORMATION
  Report Type: Spontaneous
  Country: US (occurrence: None)
  Receive Date: 20130301
  Receipt Date: 20130301
  Transmission Date: 20140127
  Serious: Yes (Hospitalization)
  Sender: FDA-Public Use
  Company Number: 359150

PATIENT
  Age: 32 Year
  Sex: Male
  Weight: 117.9 kg

DRUGS (3)
  1. NOVOLIN 70/30 [Suspect]
     Indication: TYPE 2 DIABETES MELLITUS
     Dosage: 20 U
     Route: 058
     Dates: start: 2005, end: 20120821
  2. DEPAKOTE (VALPROATE SEMISODIUM) [Concomitant]
  3. LISINOPRIL (LISINOPRIL) [Concomitant]

REACTIONS (1)
  - Hyperglycaemic unconsciousness [None]
